FAERS Safety Report 9235420 (Version 1)
Quarter: 2013Q2

REPORT INFORMATION
  Report Type: Spontaneous
  Country: AU (occurrence: AU)
  Receive Date: 20130417
  Receipt Date: 20130417
  Transmission Date: 20140414
  Serious: Yes (Hospitalization, Other)
  Sender: FDA-Public Use
  Company Number: AU-009507513-1302AUS010131

PATIENT
  Age: 47 Year
  Sex: Male

DRUGS (1)
  1. SAPHRIS [Suspect]
     Indication: SCHIZOPHRENIA
     Dosage: 10 MG, BID
     Route: 060
     Dates: start: 20130115, end: 201302

REACTIONS (4)
  - Electrocardiogram QT prolonged [Recovered/Resolved]
  - Loss of consciousness [Recovered/Resolved]
  - Convulsion [Recovering/Resolving]
  - Urinary retention [Recovered/Resolved]
